FAERS Safety Report 11335567 (Version 3)
Quarter: 2015Q4

REPORT INFORMATION
  Report Type: Spontaneous
  Country: US (occurrence: US)
  Receive Date: 20150804
  Receipt Date: 20151002
  Transmission Date: 20160304
  Serious: Yes (Hospitalization, Other)
  Sender: FDA-Public Use
  Company Number: US-GLAXOSMITHKLINE INC.-US2015GSK110053

PATIENT
  Sex: Female
  Weight: 252.4 kg

DRUGS (14)
  1. OXYGEN. [Concomitant]
     Active Substance: OXYGEN
  2. METHOCARBAMOL. [Concomitant]
     Active Substance: METHOCARBAMOL
  3. IPRATROPIUM BROMIDE AND ALBUTEROL [Concomitant]
  4. LASIX [Concomitant]
     Active Substance: FUROSEMIDE
  5. XANAX [Concomitant]
     Active Substance: ALPRAZOLAM
  6. ADVAIR DISKUS [Suspect]
     Active Substance: FLUTICASONE PROPIONATE\SALMETEROL XINAFOATE
     Indication: ASTHMA
     Dosage: 100/50 MCG
  7. DALIRESP [Concomitant]
     Active Substance: ROFLUMILAST
  8. QUETIAPINE [Concomitant]
     Active Substance: QUETIAPINE
  9. SYNTHROID [Concomitant]
     Active Substance: LEVOTHYROXINE SODIUM
  10. ADVAIR DISKUS [Suspect]
     Active Substance: FLUTICASONE PROPIONATE\SALMETEROL XINAFOATE
     Indication: EMPHYSEMA
  11. COMBIVENT RESPIMAT [Concomitant]
     Active Substance: ALBUTEROL SULFATE\IPRATROPIUM BROMIDE
  12. MUCINEX [Concomitant]
     Active Substance: GUAIFENESIN
  13. ADVAIR DISKUS [Suspect]
     Active Substance: FLUTICASONE PROPIONATE\SALMETEROL XINAFOATE
     Indication: CHRONIC OBSTRUCTIVE PULMONARY DISEASE
     Dosage: 500/50 MCG, 1 PUFF, BID
     Route: 055
  14. POTASSIUM CHLORIDE. [Concomitant]
     Active Substance: POTASSIUM CHLORIDE

REACTIONS (3)
  - Drug dose omission [Unknown]
  - Intensive care [Unknown]
  - Intentional product use issue [Unknown]
